FAERS Safety Report 25572398 (Version 1)
Quarter: 2025Q3

REPORT INFORMATION
  Report Type: Spontaneous
  Country: US (occurrence: None)
  Receive Date: 20250717
  Receipt Date: 20250717
  Transmission Date: 20251020
  Serious: Yes (Hospitalization)
  Sender: FDA-CTU
  Company Number: None

PATIENT
  Sex: Female

DRUGS (3)
  1. AMBRISENTAN [Suspect]
     Active Substance: AMBRISENTAN
     Indication: Pulmonary hypertension
     Dosage: OTHER QUANTITY : 1 DOSE;?FREQUENCY : DAILY;?
     Route: 048
     Dates: start: 20250529
  2. DIGOXIN [Suspect]
     Active Substance: DIGOXIN
  3. ASPIRIN EC TAB 81 MG [Concomitant]

REACTIONS (3)
  - Drug hypersensitivity [None]
  - Heart rate increased [None]
  - Therapy cessation [None]
